FAERS Safety Report 7885086-4 (Version None)
Quarter: 2011Q4

REPORT INFORMATION
  Report Type: 
  Country: None (occurrence: None)
  Receive Date: 20111102
  Receipt Date: 20100730
  Transmission Date: 20120403
  Serious: No
  Sender: FDA-Public Use
  Company Number: US-BAYER-201029637NA

PATIENT
  Age: 68 Year
  Sex: Male
  Weight: 122.7 kg

DRUGS (10)
  1. AVELOX [Suspect]
     Indication: INFECTION
     Dosage: UNK
     Route: 048
     Dates: start: 20100616, end: 20100623
  2. TRIAMTERENE [Concomitant]
     Dosage: UNK
  3. ANDROGEL [Suspect]
     Indication: BLOOD TESTOSTERONE DECREASED
     Dosage: 5 G, QD
     Route: 003
     Dates: start: 20100616, end: 20100619
  4. METOPROLOL TARTRATE [Concomitant]
     Dosage: UNK
  5. ANDROGEL [Suspect]
     Dosage: 5 G, QD
     Route: 003
     Dates: start: 20100708, end: 20100714
  6. PLAVIX [Concomitant]
     Dosage: UNK
     Dates: start: 20091001
  7. LISINOPRIL [Concomitant]
     Dosage: UNK
  8. ASPIRIN [Concomitant]
     Dosage: 81 MG, QD
  9. RANITIDINE [Concomitant]
     Dosage: UNK
  10. SIMVASTATIN [Concomitant]
     Dosage: UNK

REACTIONS (1)
  - BLOOD URINE PRESENT [None]
